FAERS Safety Report 5507702-4 (Version None)
Quarter: 2007Q4

REPORT INFORMATION
  Report Type: 
  Country: None (occurrence: None)
  Receive Date: 20071106
  Receipt Date: 20071105
  Transmission Date: 20080405
  Serious: Yes (Death, Life-Threatening, Hospitalization, Disabling)
  Sender: FDA-Public Use
  Company Number: B0493925A

PATIENT
  Age: 82 Year
  Sex: Male

DRUGS (2)
  1. AUGMENTIN '125' [Suspect]
     Dosage: 1875MG PER DAY
     Route: 048
     Dates: start: 20070813
  2. FLUCLOXACILLIN [Suspect]
     Dosage: 2000MG PER DAY
     Route: 048
     Dates: start: 20070807

REACTIONS (1)
  - HEPATITIS CHOLESTATIC [None]
